FAERS Safety Report 11825842 (Version 5)
Quarter: 2016Q1

REPORT INFORMATION
  Report Type: Spontaneous
  Country: US (occurrence: US)
  Receive Date: 20151211
  Receipt Date: 20160127
  Transmission Date: 20160525
  Serious: Yes (Death, Life-Threatening, Hospitalization, Disabling, Other)
  Sender: FDA-Public Use
  Company Number: US-009507513-1512USA005335

PATIENT
  Age: 65 Year
  Sex: Female
  Weight: 48.85 kg

DRUGS (1)
  1. KEYTRUDA [Suspect]
     Active Substance: PEMBROLIZUMAB
     Indication: SQUAMOUS CELL CARCINOMA OF THE TONGUE
     Dosage: UNK, Q3W
     Dates: start: 20150811, end: 20150922

REACTIONS (6)
  - Squamous cell carcinoma of the tongue [Fatal]
  - Product use issue [Unknown]
  - Mouth haemorrhage [Unknown]
  - Brain death [Unknown]
  - Cardiac arrest [Unknown]
  - Tumour haemorrhage [Fatal]

NARRATIVE: CASE EVENT DATE: 2015
